FAERS Safety Report 10213505 (Version 2)
Quarter: 2014Q2

REPORT INFORMATION
  Report Type: Spontaneous
  Country: JP (occurrence: JP)
  Receive Date: 20140603
  Receipt Date: 20140611
  Transmission Date: 20141212
  Serious: Yes (Hospitalization)
  Sender: FDA-Public Use
  Company Number: JP-ROCHE-1408292

PATIENT
  Age: 85 Year
  Sex: Female

DRUGS (4)
  1. BONVIVA [Suspect]
     Indication: PRODUCT USED FOR UNKNOWN INDICATION
     Route: 042
     Dates: start: 20140227, end: 20140502
  2. PANALDINE [Suspect]
     Indication: PRODUCT USED FOR UNKNOWN INDICATION
     Route: 048
  3. JUVELA [Concomitant]
     Route: 048
  4. SELBEX [Concomitant]
     Route: 048

REACTIONS (5)
  - Pyelonephritis [Recovering/Resolving]
  - Chills [Recovering/Resolving]
  - Pyrexia [Recovering/Resolving]
  - Decreased appetite [Recovering/Resolving]
  - Urine output decreased [Recovering/Resolving]
